FAERS Safety Report 24175595 (Version 1)
Quarter: 2024Q3

REPORT INFORMATION
  Report Type: Spontaneous
  Country: GB (occurrence: GB)
  Receive Date: 20240805
  Receipt Date: 20240805
  Transmission Date: 20241017
  Serious: Yes (Other)
  Sender: BAUSCH AND LOMB
  Company Number: GB-BAUSCHBL-2024BNL031046

PATIENT
  Age: 81 Year
  Sex: Male

DRUGS (4)
  1. VERTEPORFIN [Suspect]
     Active Substance: VERTEPORFIN
     Indication: Prostate cancer
     Dosage: 1 DAY
     Route: 065
     Dates: start: 20170824, end: 20170824
  2. GABAPENTIN [Concomitant]
     Active Substance: GABAPENTIN
     Indication: Neuralgia
     Route: 048
     Dates: start: 201706, end: 20170817
  3. FLOMAX [Concomitant]
     Active Substance: TAMSULOSIN HYDROCHLORIDE
     Indication: Urinary tract infection
     Route: 048
     Dates: start: 20170817
  4. TYLENOL [Concomitant]
     Active Substance: ACETAMINOPHEN
     Indication: Neuralgia
     Route: 065

REACTIONS (4)
  - Perineal pain [Recovered/Resolved]
  - Urinary incontinence [Recovered/Resolved with Sequelae]
  - Micturition urgency [Recovered/Resolved with Sequelae]
  - Urinary tract pain [Recovered/Resolved]

NARRATIVE: CASE EVENT DATE: 20170825
